FAERS Safety Report 8533219-9 (Version None)
Quarter: 2012Q3

REPORT INFORMATION
  Report Type: 
  Country: None (occurrence: None)
  Receive Date: 20120724
  Receipt Date: 20120717
  Transmission Date: 20120928
  Serious: Yes (Hospitalization, Other)
  Sender: FDA-Public Use
  Company Number: BR-PFIZER INC-2012173105

PATIENT
  Age: 56 Year
  Sex: Male

DRUGS (5)
  1. KETOPROFEN [Concomitant]
     Indication: ANTIINFLAMMATORY THERAPY
     Dosage: UNK
  2. KETOPROFEN [Concomitant]
     Indication: PAIN
  3. OMEPRAZOLE [Concomitant]
     Dosage: UNK
  4. LYRICA [Suspect]
     Dosage: ONCE DAILY
     Route: 048
     Dates: start: 20120101
  5. PRELONE [Concomitant]
     Indication: ARTHRITIS
     Dosage: UNK

REACTIONS (2)
  - PSORIATIC ARTHROPATHY [None]
  - PROSTATE CANCER [None]
